FAERS Safety Report 10031274 (Version 1)
Quarter: 2014Q1

REPORT INFORMATION
  Report Type: Spontaneous
  Country: US (occurrence: US)
  Receive Date: 20140324
  Receipt Date: 20140324
  Transmission Date: 20141002
  Serious: Yes (Other)
  Sender: FDA-Public Use
  Company Number: US-AMGEN-USASP2014020147

PATIENT
  Age: 75 Year
  Sex: Female
  Weight: 81 kg

DRUGS (3)
  1. ENBREL [Suspect]
     Indication: PRODUCT USED FOR UNKNOWN INDICATION
     Dosage: 25 MG, 2 TIMES/WK
     Route: 058
  2. TRILIPIX [Concomitant]
     Dosage: 45 MG, UNK
  3. EXFORGE [Concomitant]
     Dosage: UNK, 5-160 MG

REACTIONS (2)
  - Lung infection [Recovered/Resolved]
  - Sinusitis [Recovered/Resolved]
